FAERS Safety Report 6934093-4 (Version None)
Quarter: 2010Q3

REPORT INFORMATION
  Report Type: 
  Country: None (occurrence: None)
  Receive Date: 20100820
  Receipt Date: 20100805
  Transmission Date: 20110219
  Serious: Yes (Other)
  Sender: FDA-Public Use
  Company Number: PHHY2010US18735

PATIENT
  Sex: Male
  Weight: 81.633 kg

DRUGS (15)
  1. EXTAVIA [Suspect]
     Indication: MULTIPLE SCLEROSIS
     Dosage: 0.125 MG, QOD
     Route: 058
     Dates: start: 20100308
  2. EXTAVIA [Suspect]
     Dosage: 0.25 MG, QOD
     Route: 058
  3. LYRICA [Concomitant]
     Dosage: 200 MG, QD
  4. LYRICA [Concomitant]
     Dosage: 75 MG, QID
  5. LISINOPRIL [Concomitant]
     Dosage: 20 MG, QD
  6. NEXIUM [Concomitant]
     Dosage: 40 MG, QD
  7. METHOCARBAMOL [Concomitant]
     Dosage: 350 MG 1 IN AM AND 1 IN AFTERNOON, 2QHS
  8. BETHANECHOL [Concomitant]
     Dosage: 25 MG, TID
  9. ASPIRIN [Concomitant]
     Dosage: 81 MG, QD
  10. ZOCOR [Concomitant]
     Dosage: 40 MG, QD
  11. DOXYCYCLIN [Concomitant]
     Dosage: 20 MG, QD
  12. PERCOCET [Concomitant]
     Dosage: 5/325 MG PRN
  13. BACLOFEN [Concomitant]
     Dosage: 10 MG 2 TABLETS TID
  14. VITAMIN B-12 [Concomitant]
  15. BENZONATATE [Concomitant]
     Dosage: 100 MG, TID

REACTIONS (10)
  - BACK PAIN [None]
  - BALANCE DISORDER [None]
  - GAIT DISTURBANCE [None]
  - HYPOAESTHESIA [None]
  - MULTIPLE SCLEROSIS RELAPSE [None]
  - MUSCULAR WEAKNESS [None]
  - NERVE COMPRESSION [None]
  - OEDEMA PERIPHERAL [None]
  - PAIN [None]
  - PRURITUS [None]
